FAERS Safety Report 6820359-5 (Version None)
Quarter: 2010Q3

REPORT INFORMATION
  Report Type: 
  Country: None (occurrence: None)
  Receive Date: 20100707
  Receipt Date: 20100702
  Transmission Date: 20110219
  Serious: Yes (Death, Other)
  Sender: FDA-Public Use
  Company Number: US-CELGENEUS-163-50794-10070219

PATIENT

DRUGS (4)
  1. VIDAZA [Suspect]
     Route: 058
  2. VIDAZA [Suspect]
     Route: 051
  3. GEMTUZUMAB OZOGAMICIN [Suspect]
     Route: 051
  4. GEMTUZUMAB OZOGAMICIN [Suspect]

REACTIONS (3)
  - DEATH [None]
  - INFECTION [None]
  - INFUSION RELATED REACTION [None]
